FAERS Safety Report 7482468-X (Version None)
Quarter: 2011Q2

REPORT INFORMATION
  Report Type: 
  Country: None (occurrence: None)
  Receive Date: 20110516
  Receipt Date: 20110506
  Transmission Date: 20111010
  Serious: Yes (Hospitalization)
  Sender: FDA-Public Use
  Company Number: FR-ASTRAZENECA-2011SE27422

PATIENT
  Age: 29701 Day
  Sex: Male

DRUGS (11)
  1. MECIR [Suspect]
     Dosage: LONG LASTING
     Route: 048
  2. PRAVIGARD PAC (COPACKAGED) [Concomitant]
     Dosage: LONG LASTING
     Route: 048
  3. ACETAMINOPHEN [Concomitant]
     Dosage: LONG LASTING
  4. NEXIUM [Suspect]
     Route: 048
  5. EZETIMIBE [Concomitant]
     Dosage: LONG LASTING
     Route: 048
  6. PLAVIX [Concomitant]
     Dosage: LONG LASTING
     Route: 048
  7. CASODEX [Suspect]
     Route: 048
  8. RAMIPRIL [Suspect]
     Dosage: LONG LASTING
     Route: 048
  9. ACEBUTOLOL [Suspect]
     Dosage: LONG LASTING
     Route: 048
  10. NORDAZ [Suspect]
     Dosage: LONG LASTING
     Route: 048
  11. LANTUS [Concomitant]
     Dosage: LONG LASTING
     Route: 048

REACTIONS (2)
  - FALL [None]
  - ORTHOSTATIC HYPOTENSION [None]
